FAERS Safety Report 9400058 (Version 3)
Quarter: 2013Q3

REPORT INFORMATION
  Report Type: Report from Study
  Country: KR (occurrence: KR)
  Receive Date: 20130715
  Receipt Date: 20130913
  Transmission Date: 20140515
  Serious: Yes (Hospitalization)
  Sender: FDA-Public Use
  Company Number: KR-ASTELLAS-2013JP007478

PATIENT
  Age: 50 Year
  Sex: Male
  Weight: 58.8 kg

DRUGS (11)
  1. TACROLIMUS CAPSULES [Suspect]
     Indication: IMMUNOSUPPRESSANT DRUG THERAPY
     Dosage: 11 MG, UNKNOWN/D
     Route: 048
     Dates: start: 20130510
  2. TACROLIMUS CAPSULES [Suspect]
     Dosage: UNK
     Route: 048
     Dates: start: 20130305
  3. TACROLIMUS CAPSULES [Suspect]
     Dosage: 10.5 MG, UNKNOWN/D
     Route: 048
     Dates: start: 20130509, end: 20130509
  4. PROGRAF [Suspect]
     Indication: IMMUNOSUPPRESSANT DRUG THERAPY
     Dosage: UNK
     Route: 042
     Dates: start: 20130301, end: 20130305
  5. MYCONOL [Concomitant]
     Dosage: 250 MG, BID
     Route: 048
     Dates: start: 20130305
  6. SEPTRIN [Concomitant]
     Dosage: 2 DF, QOD
     Route: 048
     Dates: start: 20130308
  7. DIAMICRON [Concomitant]
     Dosage: 60 ML, UID/QD
     Route: 048
     Dates: start: 20130528
  8. LYRICA [Concomitant]
     Dosage: 75 MG, BID
     Route: 048
     Dates: start: 20130610
  9. STILNOX [Concomitant]
     Dosage: 10 MG, UID/QD
     Route: 048
     Dates: start: 20130610
  10. MACPERAN [Concomitant]
     Dosage: 10 MG, UID/QD
     Route: 042
     Dates: start: 20130703, end: 20130703
  11. NEXIUM                             /01479302/ [Concomitant]
     Dosage: 40 G, BID
     Route: 042
     Dates: start: 20130703, end: 20130704

REACTIONS (1)
  - Duodenal ulcer [Recovered/Resolved]
